FAERS Safety Report 6483690-1 (Version None)
Quarter: 2009Q4

REPORT INFORMATION
  Report Type: 
  Country: None (occurrence: None)
  Receive Date: 20091209
  Receipt Date: 20090501
  Transmission Date: 20100525
  Serious: No
  Sender: FDA-Public Use
  Company Number: US-AMGEN-KDL345451

PATIENT
  Sex: Female

DRUGS (2)
  1. ENBREL [Suspect]
     Indication: POLYARTHRITIS
     Route: 058
     Dates: start: 20090418
  2. ENBREL [Suspect]
     Indication: RHEUMATOID ARTHRITIS

REACTIONS (3)
  - ALOPECIA [None]
  - LYMPHADENOPATHY [None]
  - OROPHARYNGEAL PAIN [None]
